FAERS Safety Report 17577278 (Version 1)
Quarter: 2020Q1

REPORT INFORMATION
  Report Type: Spontaneous
  Country: FR (occurrence: FR)
  Receive Date: 20200324
  Receipt Date: 20200324
  Transmission Date: 20200409
  Serious: Yes (Life-Threatening)
  Sender: FDA-Public Use
  Company Number: FR-MYLANLABS-2020M1029977

PATIENT
  Age: 62 Year
  Sex: Male
  Weight: 103 kg

DRUGS (7)
  1. SIMVASTATINE [Concomitant]
     Active Substance: SIMVASTATIN
     Indication: PRODUCT USED FOR UNKNOWN INDICATION
     Dosage: 9 DOSAGE FORM, TOTAL
     Route: 048
     Dates: start: 20191011, end: 20191011
  2. XARELTO [Concomitant]
     Active Substance: RIVAROXABAN
     Indication: PULMONARY EMBOLISM
     Dosage: 20 DOSAGE FORM, TOTAL
     Route: 048
     Dates: start: 20191011, end: 20191011
  3. MIRTAZAPINE. [Concomitant]
     Active Substance: MIRTAZAPINE
     Indication: DEPRESSION
     Dosage: 20 DOSAGE FORM, TOTAL
     Route: 048
     Dates: start: 20191011, end: 20191011
  4. RAMIPRIL. [Concomitant]
     Active Substance: RAMIPRIL
     Indication: DIABETES MELLITUS
     Dosage: 8 DOSAGE FORM, TOTAL
     Route: 048
     Dates: start: 20191011, end: 20191011
  5. METFORMIN [Suspect]
     Active Substance: METFORMIN HYDROCHLORIDE
     Indication: TYPE 2 DIABETES MELLITUS
     Dosage: 1700 MILLIGRAM, TOTAL
     Route: 048
     Dates: start: 20191011, end: 20191011
  6. VENLAFAXINE [Concomitant]
     Active Substance: VENLAFAXINE HYDROCHLORIDE
     Indication: DEPRESSION
     Dosage: 7 DOSAGE FORM, TOTAL
     Route: 048
     Dates: start: 20191011, end: 20191011
  7. ALPRAZOLAM. [Concomitant]
     Active Substance: ALPRAZOLAM
     Indication: DEPRESSION
     Dosage: 45 DOSAGE FORM, TOTAL
     Route: 048
     Dates: start: 20191011, end: 20191011

REACTIONS (2)
  - Metabolic acidosis [Recovered/Resolved]
  - Suicide attempt [Recovered/Resolved]

NARRATIVE: CASE EVENT DATE: 20191012
